FAERS Safety Report 8615336-8 (Version None)
Quarter: 2012Q3

REPORT INFORMATION
  Report Type: 
  Country: None (occurrence: None)
  Receive Date: 20120823
  Receipt Date: 20120809
  Transmission Date: 20120928
  Serious: Yes (Life-Threatening, Hospitalization, Congenital Anomaly, Other)
  Sender: FDA-Public Use
  Company Number: DE-ARROW-2012-14229

PATIENT
  Sex: Male
  Weight: 2 kg

DRUGS (4)
  1. LEVOTHYROXINE SODIUM [Concomitant]
     Indication: HYPOTHYROIDISM
     Dosage: 50 UG, DAILY
     Route: 064
  2. NEBIVOLOL HCL [Suspect]
     Indication: HYPERTENSION
     Dosage: 50 MG, DAILY
     Route: 064
  3. RAMIPRIL [Suspect]
     Indication: HYPERTENSION
     Dosage: 5 MG/D UNTIL WK 12-14 ONLY 2.5MG/D, THEN ELEVATION TO 5 MG/D
     Route: 064
  4. FOLIC ACID [Concomitant]
     Indication: PROPHYLAXIS OF NEURAL TUBE DEFECT
     Dosage: 0.4 MG, DAILY
     Route: 064
     Dates: start: 20110829, end: 20120405

REACTIONS (6)
  - RENAL APLASIA [None]
  - CRANIAL SUTURES WIDENING [None]
  - EXTREMITY CONTRACTURE [None]
  - NEONATAL ANURIA [None]
  - RENAL FAILURE ACUTE [None]
  - SMALL FOR DATES BABY [None]
